FAERS Safety Report 8395983-1 (Version None)
Quarter: 2012Q1

REPORT INFORMATION
  Report Type: 
  Country: None (occurrence: None)
  Receive Date: 20120323
  Receipt Date: 20110930
  Transmission Date: 20120608
  Serious: Yes (Hospitalization)
  Sender: FDA-Public Use
  Company Number: 163-21880-11072912

PATIENT
  Age: 67 Year
  Sex: Male
  Weight: 97.5234 kg

DRUGS (7)
  1. LISINOPRIL [Concomitant]
  2. REVLIMID [Suspect]
     Indication: MULTIPLE MYELOMA
     Dosage: 25 MG, MONDAY, WEDNESDAY, FRIDAY, PO, 25 MG, 1 IN 1 D, PO
     Route: 048
     Dates: start: 20110629
  3. REVLIMID [Suspect]
     Indication: MULTIPLE MYELOMA
     Dosage: 25 MG, MONDAY, WEDNESDAY, FRIDAY, PO, 25 MG, 1 IN 1 D, PO
     Route: 048
     Dates: start: 20110701
  4. MORPHINE [Concomitant]
  5. ACYCLOVIR [Concomitant]
  6. PREDNISONE TAB [Concomitant]
  7. GLIMEPIRIDE [Concomitant]

REACTIONS (2)
  - DYSPNOEA [None]
  - CHEST DISCOMFORT [None]
